FAERS Safety Report 17132529 (Version 1)
Quarter: 2019Q4

REPORT INFORMATION
  Report Type: Spontaneous
  Country: US (occurrence: US)
  Receive Date: 20191210
  Receipt Date: 20191210
  Transmission Date: 20200122
  Serious: Yes (Hospitalization)
  Sender: FDA-Public Use
  Company Number: US-TEVA-2019-US-1149974

PATIENT
  Age: 28 Year
  Sex: Male

DRUGS (3)
  1. PREDNISONE. [Suspect]
     Active Substance: PREDNISONE
     Indication: SINUS DISORDER
     Route: 065
  2. SODIUM CHLORIDE (SALINE) IRRIGATIONS [Concomitant]
     Indication: SINUS DISORDER
     Route: 045
  3. ALBUTEROL. [Concomitant]
     Active Substance: ALBUTEROL
     Indication: ASTHMA
     Route: 065

REACTIONS (2)
  - Chronic granulomatous disease [Recovering/Resolving]
  - Sinusitis fungal [Recovering/Resolving]
